FAERS Safety Report 4521552-7 (Version None)
Quarter: 2004Q4

REPORT INFORMATION
  Report Type: 
  Country: None (occurrence: None)
  Receive Date: 20041101
  Receipt Date: 20040831
  Transmission Date: 20050328
  Serious: Yes (Other)
  Sender: FDA-Public Use
  Company Number: 140004USA

PATIENT
  Sex: Male

DRUGS (3)
  1. GEMFIBROZIL [Suspect]
     Indication: HYPERTRIGLYCERIDAEMIA
     Dates: start: 20010328, end: 20010623
  2. GEMFIBROZIL [Suspect]
     Indication: LIPIDS INCREASED
     Dates: start: 20010328, end: 20010623
  3. BAYCOL [Suspect]
     Indication: HYPERCHOLESTEROLAEMIA
     Dates: start: 20010328, end: 20010623

REACTIONS (7)
  - BLOOD CREATINE PHOSPHOKINASE INCREASED [None]
  - BLOOD POTASSIUM INCREASED [None]
  - DRUG INTERACTION [None]
  - HEPATIC ENZYME INCREASED [None]
  - MUSCULAR WEAKNESS [None]
  - MYALGIA [None]
  - RHABDOMYOLYSIS [None]
